FAERS Safety Report 9647596 (Version 1)
Quarter: 2013Q4

REPORT INFORMATION
  Report Type: Spontaneous
  Country: MR (occurrence: MR)
  Receive Date: 20131028
  Receipt Date: 20131028
  Transmission Date: 20140711
  Serious: Yes (Life-Threatening)
  Sender: FDA-Public Use
  Company Number: MR-ROCHE-1293345

PATIENT
  Age: 50 Year
  Sex: Male
  Weight: 56 kg

DRUGS (2)
  1. CAPECITABINE [Suspect]
     Indication: PRODUCT USED FOR UNKNOWN INDICATION
     Dosage: 3 TABLETS MORNING AND 3 TABLETS EVENING
     Route: 048
  2. OXALIPLATIN [Concomitant]
     Route: 065

REACTIONS (5)
  - Palmar-plantar erythrodysaesthesia syndrome [Recovering/Resolving]
  - Hepatic encephalopathy [Recovering/Resolving]
  - Jaundice [Recovering/Resolving]
  - Skin disorder [Recovering/Resolving]
  - Melanoderma [Recovering/Resolving]
